FAERS Safety Report 13395654 (Version 1)
Quarter: 2017Q2

REPORT INFORMATION
  Report Type: Spontaneous
  Country: GB (occurrence: GB)
  Receive Date: 20170403
  Receipt Date: 20170403
  Transmission Date: 20170830
  Serious: Yes (Hospitalization)
  Sender: FDA-Public Use
  Company Number: GB-TORRENT-00015138

PATIENT
  Age: 25 Year
  Sex: Male

DRUGS (6)
  1. CYPROTERONE ACETATE [Concomitant]
     Active Substance: CYPROTERONE ACETATE
  2. QUETIAPINE FUMARATE. [Suspect]
     Active Substance: QUETIAPINE FUMARATE
  3. FINASTERIDE. [Concomitant]
     Active Substance: FINASTERIDE
  4. OMEGA-3 FISH OIL [Concomitant]
     Active Substance: FISH OIL\OMEGA-3 FATTY ACIDS
  5. SERTRALINE [Suspect]
     Active Substance: SERTRALINE HYDROCHLORIDE
  6. PROGYNOVA [Concomitant]
     Active Substance: ESTRADIOL VALERATE

REACTIONS (2)
  - Overdose [Unknown]
  - Electrocardiogram QT prolonged [Recovered/Resolved]

NARRATIVE: CASE EVENT DATE: 20170309
